FAERS Safety Report 13840562 (Version 1)
Quarter: 2017Q3

REPORT INFORMATION
  Report Type: Spontaneous
  Country: US (occurrence: US)
  Receive Date: 20170807
  Receipt Date: 20170807
  Transmission Date: 20171127
  Serious: No
  Sender: FDA-Public Use
  Company Number: US-VIFOR (INTERNATIONAL) INC.-VIT-2016-08718

PATIENT
  Age: 29 Year
  Sex: Male
  Weight: 49.03 kg

DRUGS (13)
  1. VELTASSA [Suspect]
     Active Substance: PATIROMER
     Indication: HYPERKALAEMIA
     Route: 048
     Dates: start: 20161115, end: 201706
  2. NOVOLOG [Concomitant]
     Active Substance: INSULIN ASPART
  3. CLONIDINE HYDROCHLORIDE. [Concomitant]
     Active Substance: CLONIDINE HYDROCHLORIDE
  4. COLESTYRAMINE [Concomitant]
     Active Substance: CHOLESTYRAMINE
  5. VITAMINS NOS [Concomitant]
     Active Substance: VITAMINS
  6. ZEMPLAR [Concomitant]
     Active Substance: PARICALCITOL
  7. LEVEMIR [Concomitant]
     Active Substance: INSULIN DETEMIR
  8. AMLODIPINE BESILATE [Concomitant]
     Active Substance: AMLODIPINE BESYLATE
  9. PHOSLO [Concomitant]
     Active Substance: CALCIUM ACETATE
  10. LOSARTAN POTASSIUM. [Concomitant]
     Active Substance: LOSARTAN POTASSIUM
  11. OMEPRAZOLE. [Concomitant]
     Active Substance: OMEPRAZOLE
  12. AUGMENTIN [Concomitant]
     Active Substance: AMOXICILLIN\CLAVULANATE POTASSIUM
  13. VENOFER [Concomitant]
     Active Substance: IRON SUCROSE
     Indication: PRODUCT USED FOR UNKNOWN INDICATION

REACTIONS (1)
  - Blood potassium increased [Unknown]

NARRATIVE: CASE EVENT DATE: 2017
